FAERS Safety Report 10741762 (Version 1)
Quarter: 2015Q1

REPORT INFORMATION
  Report Type: Spontaneous
  Country: US (occurrence: None)
  Receive Date: 20150123
  Receipt Date: 20150123
  Transmission Date: 20150721
  Serious: Yes (Death)
  Sender: FDA-Public Use
  Company Number: 2015COR00009

PATIENT
  Age: 26 Year
  Sex: Male

DRUGS (1)
  1. OXYCODONE [Suspect]
     Active Substance: OXYCODONE

REACTIONS (5)
  - Hepatotoxicity [None]
  - Coma [None]
  - Tachycardia [None]
  - Hypotension [None]
  - Metabolic acidosis [None]
